FAERS Safety Report 9318106 (Version 1)
Quarter: 2013Q2

REPORT INFORMATION
  Report Type: Spontaneous
  Country: US (occurrence: US)
  Receive Date: 20130530
  Receipt Date: 20130530
  Transmission Date: 20140414
  Serious: No
  Sender: FDA-Public Use
  Company Number: US-GLAXOSMITHKLINE-A1005092A

PATIENT
  Age: 48 Year
  Sex: Female

DRUGS (9)
  1. VENTOLIN [Suspect]
     Indication: ASTHMA
     Dosage: 2PUFF AS REQUIRED
     Route: 055
     Dates: start: 20121127
  2. TEGRETOL [Concomitant]
  3. UNKNOWN MEDICATION [Concomitant]
  4. RISPERDAL [Concomitant]
  5. SYNTHROID [Concomitant]
  6. LEVOTHYROXINE [Concomitant]
  7. CARVEDILOL [Concomitant]
  8. BABY ASPIRIN [Concomitant]
  9. OXYBUTYNIN [Concomitant]

REACTIONS (3)
  - Cough [Not Recovered/Not Resolved]
  - Drug ineffective [Unknown]
  - Product quality issue [Unknown]
